FAERS Safety Report 11741376 (Version 3)
Quarter: 2016Q1

REPORT INFORMATION
  Report Type: Report from Study
  Country: BR (occurrence: BR)
  Receive Date: 20151116
  Receipt Date: 20160215
  Transmission Date: 20160525
  Serious: Yes (Other)
  Sender: FDA-Public Use
  Company Number: BR-ABBVIE-15K-020-1498926-00

PATIENT
  Age: 41 Year
  Sex: Male
  Weight: 47 kg

DRUGS (1)
  1. HUMIRA [Suspect]
     Active Substance: ADALIMUMAB
     Indication: ANKYLOSING SPONDYLITIS
     Route: 058
     Dates: start: 20090101

REACTIONS (9)
  - Road traffic accident [Not Recovered/Not Resolved]
  - Burning sensation [Not Recovered/Not Resolved]
  - Weight decreased [Unknown]
  - Cervical vertebral fracture [Not Recovered/Not Resolved]
  - Pain [Unknown]
  - Post procedural complication [Not Recovered/Not Resolved]
  - Hypoaesthesia [Not Recovered/Not Resolved]
  - Mobility decreased [Recovered/Resolved]
  - Spinal fracture [Not Recovered/Not Resolved]

NARRATIVE: CASE EVENT DATE: 20150829
